FAERS Safety Report 6380758-5 (Version None)
Quarter: 2009Q3

REPORT INFORMATION
  Report Type: 
  Country: None (occurrence: None)
  Receive Date: 20090924
  Receipt Date: 20090914
  Transmission Date: 20100115
  Serious: Yes (Other)
  Sender: FDA-Public Use
  Company Number: GXKR2009GB10237

PATIENT
  Age: 73 Year
  Sex: Male

DRUGS (3)
  1. ITRACONAZOLE [Suspect]
     Dosage: 200 MG,
     Dates: start: 20061101
  2. RIFABUTIN [Suspect]
     Dosage: 300 MG, QD,
     Dates: start: 20061101
  3. CLARITHROMYCIN [Concomitant]

REACTIONS (4)
  - DRUG LEVEL INCREASED [None]
  - HYPOPYON [None]
  - UVEITIS [None]
  - VITRITIS [None]
